FAERS Safety Report 11089296 (Version 1)
Quarter: 2015Q2

REPORT INFORMATION
  Report Type: Report from Study
  Country: US (occurrence: US)
  Receive Date: 20150505
  Receipt Date: 20150505
  Transmission Date: 20150821
  Serious: Yes (Death, Hospitalization)
  Sender: FDA-Public Use
  Company Number: US-ASTRAZENECA-2013SE08398

PATIENT
  Age: 32295 Day
  Sex: Male

DRUGS (14)
  1. PULMICORT RESPULES [Suspect]
     Active Substance: BUDESONIDE
     Indication: PNEUMONIA
     Dosage: TWO TIMES A DAY
     Route: 055
  2. PULMICORT RESPULES [Suspect]
     Active Substance: BUDESONIDE
     Indication: PULMONARY FIBROSIS
     Dosage: TWO TIMES A DAY
     Route: 055
  3. INSULIN [Concomitant]
     Active Substance: INSULIN NOS
     Indication: DIABETES MELLITUS
     Route: 058
  4. DIGITALIS [Concomitant]
     Active Substance: DIGITALIS
     Indication: CARDIAC DISORDER
     Route: 048
     Dates: start: 2011
  5. PULMICORT RESPULES [Suspect]
     Active Substance: BUDESONIDE
     Indication: BYSSINOSIS
     Dosage: TWO TIMES A DAY
     Route: 055
  6. PULMICORT RESPULES [Suspect]
     Active Substance: BUDESONIDE
     Indication: CHRONIC OBSTRUCTIVE PULMONARY DISEASE
     Dosage: TWO TIMES A DAY
     Route: 055
  7. POTASSIUM [Concomitant]
     Active Substance: POTASSIUM
     Route: 048
  8. BLOOD PRESSURE MEDICINES [Concomitant]
     Active Substance: UNSPECIFIED INGREDIENT
     Indication: BLOOD PRESSURE ABNORMAL
  9. PULMICORT RESPULES [Suspect]
     Active Substance: BUDESONIDE
     Indication: TOTAL LUNG CAPACITY ABNORMAL
     Dosage: TWO TIMES A DAY
     Route: 055
  10. PREDNISONE. [Concomitant]
     Active Substance: PREDNISONE
     Route: 048
     Dates: start: 2007
  11. SIMVASTATIN. [Concomitant]
     Active Substance: SIMVASTATIN
     Indication: BLOOD CHOLESTEROL ABNORMAL
     Route: 048
  12. DIGITALIS [Concomitant]
     Active Substance: DIGITALIS
     Indication: ATRIAL FIBRILLATION
     Route: 048
     Dates: start: 2011
  13. METFORMIN [Concomitant]
     Active Substance: METFORMIN HYDROCHLORIDE
     Indication: DIABETES MELLITUS
     Route: 048
     Dates: start: 2005
  14. ALBUTEROL. [Concomitant]
     Active Substance: ALBUTEROL

REACTIONS (3)
  - Pneumonia [Unknown]
  - Off label use [Unknown]
  - Death [Fatal]

NARRATIVE: CASE EVENT DATE: 20150330
